FAERS Safety Report 17737456 (Version 1)
Quarter: 2020Q2

REPORT INFORMATION
  Report Type: Report from Study
  Country: US (occurrence: US)
  Receive Date: 20200504
  Receipt Date: 20200504
  Transmission Date: 20200714
  Serious: Yes (Hospitalization)
  Sender: FDA-Public Use
  Company Number: US-TEVA-2020-US-1231416

PATIENT
  Age: 47 Year
  Sex: Male

DRUGS (5)
  1. TRANEXAMIC ACID. [Concomitant]
     Active Substance: TRANEXAMIC ACID
     Route: 065
  2. PHENYLEPHRINE [Suspect]
     Active Substance: PHENYLEPHRINE HYDROCHLORIDE
     Indication: HYPERTENSION
     Dosage: MAXIMUM DOSE: 91 MCG/MIN
     Route: 065
  3. NOREPINEPHRINE. [Suspect]
     Active Substance: NOREPINEPHRINE
     Indication: HYPERTENSION
     Dosage: MAXIMUM DOSE: 82 MCG/MIN
     Route: 065
  4. LEVETIRACETAM. [Concomitant]
     Active Substance: LEVETIRACETAM
     Indication: SEIZURE PROPHYLAXIS
     Route: 065
  5. NIMODIPINE. [Concomitant]
     Active Substance: NIMODIPINE
     Dosage: FOR 21 DAYS
     Route: 050

REACTIONS (1)
  - Posterior reversible encephalopathy syndrome [Recovered/Resolved]
